FAERS Safety Report 25759729 (Version 1)
Quarter: 2025Q3

REPORT INFORMATION
  Report Type: Spontaneous
  Country: US (occurrence: US)
  Receive Date: 20250904
  Receipt Date: 20250904
  Transmission Date: 20251021
  Serious: No
  Sender: ABBVIE
  Company Number: US-ABBVIE-6436960

PATIENT
  Age: 35 Year
  Sex: Female

DRUGS (3)
  1. RINVOQ [Suspect]
     Active Substance: UPADACITINIB
     Indication: Exposure via body fluid
     Route: 050
  2. VITAMINS [Concomitant]
     Active Substance: VITAMINS
     Indication: Vitamin supplementation
  3. TYLENOL [Concomitant]
     Active Substance: ACETAMINOPHEN
     Indication: Pain

REACTIONS (5)
  - Paternal exposure during pregnancy [Unknown]
  - Uterine contractions during pregnancy [Recovered/Resolved]
  - Gestational hypertension [Recovered/Resolved]
  - Maternal exposure during pregnancy [Unknown]
  - Live birth [Unknown]

NARRATIVE: CASE EVENT DATE: 20230101
